FAERS Safety Report 23669512 (Version 1)
Quarter: 2024Q1

REPORT INFORMATION
  Report Type: Spontaneous
  Country: US (occurrence: None)
  Receive Date: 20240324
  Receipt Date: 20240324
  Transmission Date: 20240409
  Serious: Yes (Disabling)
  Sender: FDA-Public Use
  Company Number: None

PATIENT
  Age: 76 Year
  Sex: Female
  Weight: 77.4 kg

DRUGS (9)
  1. PLAVIX [Suspect]
     Active Substance: CLOPIDOGREL BISULFATE
     Indication: Anticoagulant therapy
     Dosage: OTHER QUANTITY : 1 TABLET(S);?FREQUENCY : AT BEDTIME;?
     Route: 048
     Dates: start: 20230111
  2. LACOSAMIDE [Suspect]
     Active Substance: LACOSAMIDE
     Indication: Blood cholesterol increased
     Dosage: OTHER QUANTITY : 1 TABLET(S);?FREQUENCY : TWICE A DAY;?
     Route: 048
  3. KEPPRA [Suspect]
     Active Substance: LEVETIRACETAM
  4. LIPITOR [Suspect]
     Active Substance: ATORVASTATIN CALCIUM
  5. SYNTHROID [Concomitant]
  6. PLAVIX [Concomitant]
     Active Substance: CLOPIDOGREL BISULFATE
  7. VITAMIN D3 [Concomitant]
     Active Substance: CHOLECALCIFEROL
  8. Once Daily Multi Vitamin [Concomitant]
  9. METAMUCIL [Concomitant]
     Active Substance: PLANTAGO SEED

REACTIONS (6)
  - Dysuria [None]
  - Urinary retention [None]
  - Psychotic disorder [None]
  - Loss of personal independence in daily activities [None]
  - Agitation [None]
  - Drug hypersensitivity [None]

NARRATIVE: CASE EVENT DATE: 20230315
